FAERS Safety Report 15541817 (Version 1)
Quarter: 2018Q4

REPORT INFORMATION
  Report Type: Spontaneous
  Country: US (occurrence: US)
  Receive Date: 20181023
  Receipt Date: 20181023
  Transmission Date: 20190205
  Serious: Yes (Other)
  Sender: FDA-Public Use
  Company Number: US-NAPPMUNDI-USA-2018-0144292

PATIENT
  Sex: Male

DRUGS (2)
  1. OXYCODONE HYDROCHLORIDE (SIMILAR TO NDA 22-272) [Suspect]
     Active Substance: OXYCODONE HYDROCHLORIDE
     Indication: HEADACHE
  2. OXYCODONE HYDROCHLORIDE (SIMILAR TO NDA 22-272) [Suspect]
     Active Substance: OXYCODONE HYDROCHLORIDE
     Indication: NECK PAIN
     Route: 048

REACTIONS (12)
  - Photophobia [Unknown]
  - Dizziness [Unknown]
  - Anxiety [Unknown]
  - Balance disorder [Unknown]
  - Hypoaesthesia [Unknown]
  - Headache [Unknown]
  - Insomnia [Unknown]
  - Tremor [Unknown]
  - Hyperacusis [Unknown]
  - Hallucination [Unknown]
  - Drug withdrawal syndrome [Unknown]
  - Intentional product use issue [Unknown]
